FAERS Safety Report 11829998 (Version 2)
Quarter: 2016Q4

REPORT INFORMATION
  Report Type: Spontaneous
  Country: US (occurrence: US)
  Receive Date: 20151213
  Receipt Date: 20161128
  Transmission Date: 20170206
  Serious: No
  Sender: FDA-Public Use
  Company Number: PHEH2015US025194

PATIENT
  Sex: Female

DRUGS (1)
  1. COSENTYX [Suspect]
     Active Substance: SECUKINUMAB
     Indication: PRODUCT USED FOR UNKNOWN INDICATION
     Dosage: 300 MG, UNK
     Route: 065

REACTIONS (1)
  - Maternal exposure during pregnancy [Unknown]
